FAERS Safety Report 25515364 (Version 2)
Quarter: 2025Q3

REPORT INFORMATION
  Report Type: Spontaneous
  Country: EU (occurrence: EU)
  Receive Date: 20250704
  Receipt Date: 20250715
  Transmission Date: 20251021
  Serious: Yes (Hospitalization, Other)
  Sender: NOVARTIS
  Company Number: EU-SANDOZ-SDZ2025NL042926

PATIENT
  Age: 68 Year
  Sex: Female

DRUGS (18)
  1. IMATINIB [Suspect]
     Active Substance: IMATINIB
     Indication: Gastrointestinal stromal tumour
     Dosage: 400 MG, QD
     Route: 065
     Dates: start: 20230315, end: 20230424
  2. IMATINIB [Suspect]
     Active Substance: IMATINIB
     Dosage: 100 MG, QD
     Route: 065
     Dates: start: 20230925, end: 20230927
  3. IMATINIB [Suspect]
     Active Substance: IMATINIB
     Dosage: 200 MG, QD
     Route: 048
     Dates: start: 20240605, end: 20240605
  4. IMATINIB [Suspect]
     Active Substance: IMATINIB
     Dosage: 300 MG, QD
     Route: 048
     Dates: start: 20240603, end: 20240603
  5. IMATINIB [Suspect]
     Active Substance: IMATINIB
     Dosage: 200 MG, QD
     Route: 048
     Dates: start: 20240609, end: 20240611
  6. IMATINIB [Suspect]
     Active Substance: IMATINIB
     Dosage: 1 MG, QD
     Route: 048
     Dates: start: 20240422
  7. IMATINIB [Suspect]
     Active Substance: IMATINIB
     Dosage: 3 MG, QD
     Route: 048
     Dates: start: 20240429
  8. IMATINIB [Suspect]
     Active Substance: IMATINIB
     Dosage: 10 MG, QD
     Route: 048
     Dates: start: 20240506
  9. IMATINIB [Suspect]
     Active Substance: IMATINIB
     Dosage: 50 MG, QD (CACHET)
     Route: 048
     Dates: start: 20240523
  10. IMATINIB [Suspect]
     Active Substance: IMATINIB
     Dosage: 100 MG, QD
     Route: 048
     Dates: start: 20240528
  11. IMATINIB [Suspect]
     Active Substance: IMATINIB
     Dosage: 100 MG, QD
     Route: 048
     Dates: start: 20240604, end: 20240604
  12. IMATINIB [Suspect]
     Active Substance: IMATINIB
     Dosage: 300 MG, QD
     Route: 048
     Dates: start: 20240606
  13. SUNITINIB [Suspect]
     Active Substance: SUNITINIB
     Indication: Gastrointestinal stromal tumour
     Route: 065
     Dates: start: 20231108, end: 20240515
  14. PREDNISOLONE [Concomitant]
     Active Substance: PREDNISOLONE
     Indication: Type IV hypersensitivity reaction
     Dosage: 0.5 MG/KG, QD (FOR SEVEN DAYS)
     Route: 048
     Dates: start: 20230424, end: 2023
  15. PREDNISOLONE [Concomitant]
     Active Substance: PREDNISOLONE
     Dosage: 1 MG/KG, QD
     Route: 065
     Dates: start: 20230928, end: 20231020
  16. SULFAMETHOXAZOLE\TRIMETHOPRIM [Concomitant]
     Active Substance: SULFAMETHOXAZOLE\TRIMETHOPRIM
     Indication: Prophylaxis
     Route: 065
     Dates: start: 202304
  17. PANTOPRAZOLE [Concomitant]
     Active Substance: PANTOPRAZOLE
     Indication: Prophylaxis
     Route: 065
     Dates: start: 202304
  18. BETAMETHASONE [Concomitant]
     Active Substance: BETAMETHASONE
     Indication: Type IV hypersensitivity reaction
     Route: 065
     Dates: start: 20230928

REACTIONS (9)
  - Drug reaction with eosinophilia and systemic symptoms [Recovered/Resolved]
  - Erythema [Recovered/Resolved]
  - Macule [Recovered/Resolved]
  - Dyspnoea [Recovered/Resolved]
  - Chills [Recovered/Resolved]
  - Type IV hypersensitivity reaction [Recovered/Resolved]
  - Dermatitis exfoliative [Recovered/Resolved]
  - Stomatitis [Unknown]
  - Product preparation issue [Unknown]

NARRATIVE: CASE EVENT DATE: 20230415
